FAERS Safety Report 6858886-7 (Version None)
Quarter: 2010Q3

REPORT INFORMATION
  Report Type: 
  Country: None (occurrence: None)
  Receive Date: 20100719
  Receipt Date: 20080216
  Transmission Date: 20110219
  Serious: No
  Sender: FDA-Public Use
  Company Number: US-PFIZER INC-2008016986

PATIENT
  Sex: Female
  Weight: 111.4 kg

DRUGS (17)
  1. CHANTIX [Suspect]
     Indication: SMOKING CESSATION THERAPY
     Dates: start: 20080101, end: 20080215
  2. PROPRANOLOL [Concomitant]
  3. VYTORIN [Concomitant]
  4. DOCUSATE [Concomitant]
  5. IBUPROFEN [Concomitant]
  6. XANAX [Concomitant]
  7. LOTREL [Concomitant]
  8. CLARITIN [Concomitant]
  9. LASIX [Concomitant]
  10. NEXIUM [Concomitant]
  11. ATIVAN [Concomitant]
  12. ZOLOFT [Concomitant]
  13. POTASSIUM CHLORIDE [Concomitant]
  14. PLAVIX [Concomitant]
  15. LEVOTHYROXINE SODIUM [Concomitant]
  16. BACTRIM [Concomitant]
  17. ACETYLSALICYLIC ACID [Concomitant]

REACTIONS (2)
  - INSOMNIA [None]
  - URINARY INCONTINENCE [None]
